FAERS Safety Report 7658763-8 (Version None)
Quarter: 2011Q3

REPORT INFORMATION
  Report Type: 
  Country: None (occurrence: None)
  Receive Date: 20110805
  Receipt Date: 20110803
  Transmission Date: 20111222
  Serious: Yes (Life-Threatening, Hospitalization)
  Sender: FDA-Public Use
  Company Number: DE-SANOFI-AVENTIS-2011SA044417

PATIENT
  Age: 63 Year
  Sex: Female
  Weight: 70 kg

DRUGS (10)
  1. MARCUMAR [Concomitant]
     Indication: ATRIAL FIBRILLATION
     Route: 065
  2. MULTAQ [Suspect]
     Route: 048
     Dates: start: 20101201, end: 20110711
  3. DOXAZOSIN MESYLATE [Concomitant]
     Route: 065
  4. HYDROCHLOROTHIAZIDE/OLMESARTAN MEDOXOMIL [Concomitant]
     Dosage: ONE TABLET CONTAINS OLMESARTAN MEDOXOMIL+HYDROCHLOROTHIAZIDE 40/25 MG
     Route: 065
  5. ACETYLSALICYLIC ACID SRT [Concomitant]
     Indication: CORONARY ARTERY DISEASE
     Route: 048
  6. PLAVIX [Concomitant]
     Route: 065
  7. BISOPROLOL FUMARATE [Concomitant]
     Route: 065
  8. OMEPRAZOLE [Concomitant]
     Indication: PROPHYLAXIS
     Route: 048
  9. MULTAQ [Suspect]
     Indication: ATRIAL FIBRILLATION
     Route: 048
     Dates: start: 20101201, end: 20110711
  10. HYDROCHLOROTHIAZIDE/OLMESARTAN MEDOXOMIL [Concomitant]
     Dosage: ONE TABLET CONTAINS OLMESARTAN MEDOXOMIL+HYDROCHLOROTHIAZIDE 40/25 MG
     Route: 065

REACTIONS (13)
  - RENAL FAILURE ACUTE [None]
  - BLOOD UREA INCREASED [None]
  - DYSPNOEA [None]
  - NAUSEA [None]
  - GENERAL PHYSICAL HEALTH DETERIORATION [None]
  - MUSCLE SPASMS [None]
  - BRADYCARDIA [None]
  - BLOOD POTASSIUM INCREASED [None]
  - OEDEMA [None]
  - BLOOD CREATININE INCREASED [None]
  - PARALYSIS [None]
  - FATIGUE [None]
  - DECREASED APPETITE [None]
